FAERS Safety Report 16369454 (Version 1)
Quarter: 2019Q2

REPORT INFORMATION
  Report Type: Spontaneous
  Country: US (occurrence: US)
  Receive Date: 20190529
  Receipt Date: 20190529
  Transmission Date: 20190711
  Serious: No
  Sender: FDA-Public Use
  Company Number: US-JNJFOC-20190519295

PATIENT
  Sex: Female

DRUGS (1)
  1. ETRAVIRINE [Suspect]
     Active Substance: ETRAVIRINE
     Indication: FRIEDREICH^S ATAXIA
     Route: 048
     Dates: start: 20190311

REACTIONS (2)
  - Product use in unapproved indication [Unknown]
  - Off label use [Unknown]
